FAERS Safety Report 5794337-1 (Version None)
Quarter: 2008Q2

REPORT INFORMATION
  Report Type: 
  Country: None (occurrence: None)
  Receive Date: 20080625
  Receipt Date: 20080610
  Transmission Date: 20081010
  Serious: Yes (Life-Threatening, Hospitalization)
  Sender: FDA-Public Use
  Company Number: 2008AL006719

PATIENT
  Age: 56 Year
  Sex: Male
  Weight: 111.1313 kg

DRUGS (8)
  1. DIGOXIN [Suspect]
     Indication: CARDIAC DISORDER
     Dosage: 0.25MG DAILY PO
     Route: 048
  2. POTASSIUM CHLORIDE [Concomitant]
  3. LASIX [Concomitant]
  4. NEURONTIN [Concomitant]
  5. ALDACTONE [Concomitant]
  6. ACTOS [Concomitant]
  7. PLAVIX [Concomitant]
  8. ZETIA [Concomitant]

REACTIONS (3)
  - CARDIAC ARREST [None]
  - HEART RATE DECREASED [None]
  - HYPOTENSION [None]
